FAERS Safety Report 9276564 (Version 1)
Quarter: 2012Q4

REPORT INFORMATION
  Report Type: Spontaneous
  Country: CH (occurrence: None)
  Receive Date: 20121109
  Receipt Date: 20121109
  Transmission Date: 20130627
  Serious: Yes (Hospitalization)
  Sender: FDA-Public Use
  Company Number: 2012S1000298

PATIENT
  Age: 73 Year
  Sex: Female

DRUGS (8)
  1. CUBICIN (DAPTOMYCIN) [Suspect]
     Route: 042
  2. RIFAMPICIN [Suspect]
  3. SINTROM [Concomitant]
  4. STARLIX [Concomitant]
  5. SPIRONOLACTONE [Concomitant]
  6. ENATEC [Concomitant]
  7. PANTOPRAZOLE SODIUM [Concomitant]
  8. CALCIMAGON-D3 [Concomitant]

REACTIONS (8)
  - Eosinophilic pneumonia [None]
  - Bronchopneumonia [None]
  - Toxicity to various agents [None]
  - Obliterative bronchiolitis [None]
  - Aortic arteriosclerosis [None]
  - Aortic calcification [None]
  - Cardiomyopathy [None]
  - Ventricular failure [None]
